FAERS Safety Report 5741404-4 (Version None)
Quarter: 2008Q2

REPORT INFORMATION
  Report Type: 
  Country: None (occurrence: None)
  Receive Date: 20080514
  Receipt Date: 20080429
  Transmission Date: 20081010
  Serious: Yes (Death)
  Sender: FDA-Public Use
  Company Number: 2008S1003048

PATIENT
  Age: 66 Year
  Sex: Female

DRUGS (6)
  1. ZOPICLONE (ZOPICLONE) [Suspect]
     Indication: DRUG USE FOR UNKNOWN INDICATION
     Dosage: 7.5 MG;DAILY.ORAL
     Route: 048
  2. MIRTAZAPINE [Suspect]
     Indication: DRUG USE FOR UNKNOWN INDICATION
  3. ACETYLSALICYLIC ACID SRT [Concomitant]
  4. AMITRIPTLINE HCL [Suspect]
     Indication: DRUG USE FOR UNKNOWN INDICATION
  5. DILTIAZEM [Suspect]
     Indication: DRUG USE FOR UNKNOWN INDICATION
  6. ANANDIN EXTRA (THROMAPYRIN N) [Suspect]
     Indication: DRUG USE FOR UNKNOWN INDICATION

REACTIONS (3)
  - HEPATIC STEATOSIS [None]
  - OVERDOSE [None]
  - PULMONARY OEDEMA [None]
